FAERS Safety Report 22372995 (Version 1)
Quarter: 2023Q2

REPORT INFORMATION
  Report Type: Spontaneous
  Country: CZ (occurrence: CZ)
  Receive Date: 20230526
  Receipt Date: 20230526
  Transmission Date: 20230722
  Serious: Yes (Other)
  Sender: FDA-Public Use
  Company Number: CZ-BRISTOL-MYERS SQUIBB COMPANY-2023-064678

PATIENT
  Age: 66 Year
  Sex: Female

DRUGS (4)
  1. CARBOPLATIN [Suspect]
     Active Substance: CARBOPLATIN
     Indication: Squamous cell carcinoma of lung
     Route: 065
  2. PACLITAXEL [Suspect]
     Active Substance: PACLITAXEL
     Indication: Lung squamous cell carcinoma stage IV
     Route: 042
     Dates: start: 20220510, end: 20220531
  3. IPILIMUMAB [Suspect]
     Active Substance: IPILIMUMAB
     Indication: Lung squamous cell carcinoma stage IV
     Route: 042
     Dates: start: 20220510, end: 20230228
  4. NIVOLUMAB [Suspect]
     Active Substance: NIVOLUMAB
     Indication: Lung squamous cell carcinoma stage IV
     Route: 042
     Dates: start: 20220510, end: 20230228

REACTIONS (6)
  - Hypothyroidism [Recovered/Resolved]
  - Pneumonitis [Recovered/Resolved]
  - Malignant neoplasm progression [None]
  - Tumour pseudoprogression [None]
  - Off label use [None]
  - Urticaria [Recovered/Resolved]

NARRATIVE: CASE EVENT DATE: 20220616
